FAERS Safety Report 17348809 (Version 1)
Quarter: 2020Q1

REPORT INFORMATION
  Report Type: Spontaneous
  Country: CN (occurrence: CN)
  Receive Date: 20200130
  Receipt Date: 20200130
  Transmission Date: 20200409
  Serious: Yes (Hospitalization)
  Sender: FDA-Public Use
  Company Number: CN-AMNEAL PHARMACEUTICALS-2020-AMRX-00276

PATIENT
  Age: 75 Year
  Sex: Male

DRUGS (1)
  1. ALENDRONATE SODIUM IR [Suspect]
     Active Substance: ALENDRONATE SODIUM
     Indication: OSTEOPOROSIS
     Dosage: 70 MILLIGRAM, 1 /WEEK
     Route: 048

REACTIONS (4)
  - International normalised ratio increased [Recovering/Resolving]
  - Petechiae [Recovered/Resolved]
  - Ecchymosis [Recovered/Resolved]
  - Drug interaction [Unknown]
